FAERS Safety Report 16258849 (Version 3)
Quarter: 2025Q3

REPORT INFORMATION
  Report Type: Spontaneous
  Country: EU (occurrence: EU)
  Receive Date: 20190501
  Receipt Date: 20250801
  Transmission Date: 20251021
  Serious: Yes (Death, Other)
  Sender: AUROBINDO
  Company Number: EU-AUROBINDO-AUR-APL-2019-023489

PATIENT
  Age: 64 Year
  Sex: Female

DRUGS (15)
  1. OLANZAPINE [Suspect]
     Active Substance: OLANZAPINE
     Indication: Nausea
     Route: 065
  2. OLANZAPINE [Suspect]
     Active Substance: OLANZAPINE
     Indication: Sleep disorder
     Dosage: 10 MILLIGRAM, ONCE A DAY (BEFORE SLEEP)
     Route: 065
  3. FLUCONAZOLE [Suspect]
     Active Substance: FLUCONAZOLE
     Indication: Oral fungal infection
     Route: 065
  4. FLUCONAZOLE [Suspect]
     Active Substance: FLUCONAZOLE
     Indication: Oral fungal infection
     Dosage: 200 MILLIGRAM, ONCE A DAY
     Route: 048
  5. AMITRIPTYLINE [Interacting]
     Active Substance: AMITRIPTYLINE
     Indication: Pain
     Route: 065
  6. AMITRIPTYLINE [Interacting]
     Active Substance: AMITRIPTYLINE
     Indication: Cervix carcinoma
     Dosage: 150 MILLIGRAM, ONCE A DAY
     Route: 065
  7. AMITRIPTYLINE [Interacting]
     Active Substance: AMITRIPTYLINE
     Indication: Cancer pain
  8. MORPHINE [Interacting]
     Active Substance: MORPHINE
     Indication: Pain
     Route: 065
  9. MORPHINE [Interacting]
     Active Substance: MORPHINE
     Indication: Cervix carcinoma
  10. MORPHINE [Suspect]
     Active Substance: MORPHINE
     Indication: Cancer pain
     Dosage: 240 MILLIGRAM, ONCE A DAY
     Route: 048
  11. FUROSEMIDE [Interacting]
     Active Substance: FUROSEMIDE
     Indication: Oedema peripheral
     Route: 065
  12. FUROSEMIDE [Interacting]
     Active Substance: FUROSEMIDE
     Route: 065
  13. FUROSEMIDE [Interacting]
     Active Substance: FUROSEMIDE
     Dosage: 60 MILLIGRAM, ONCE A DAY
     Route: 065
  14. UNSPECIFIED INGREDIENT [Concomitant]
     Active Substance: UNSPECIFIED INGREDIENT
     Indication: Product used for unknown indication
     Route: 065
  15. POTASSIUM [Concomitant]
     Active Substance: POTASSIUM
     Indication: Product used for unknown indication
     Route: 065

REACTIONS (6)
  - Pulmonary embolism [Fatal]
  - Drug interaction [Fatal]
  - Disturbance in attention [Unknown]
  - Somnolence [Not Recovered/Not Resolved]
  - Embolism venous [Unknown]
  - Confusional state [Not Recovered/Not Resolved]
